FAERS Safety Report 12084226 (Version 2)
Quarter: 2016Q1

REPORT INFORMATION
  Report Type: Spontaneous
  Country: JP (occurrence: JP)
  Receive Date: 20160217
  Receipt Date: 20160318
  Transmission Date: 20160526
  Serious: Yes (Other)
  Sender: FDA-Public Use
  Company Number: JP-GLAXOSMITHKLINE-JP2016JPN020748

PATIENT
  Age: 41 Year
  Sex: Female

DRUGS (2)
  1. LAMICTAL [Suspect]
     Active Substance: LAMOTRIGINE
     Indication: EPILEPSY
     Dosage: 50 MG, 1D
     Route: 048
  2. LAMICTAL [Suspect]
     Active Substance: LAMOTRIGINE
     Dosage: 100 MG, 1D
     Route: 048
     Dates: start: 201510

REACTIONS (4)
  - Loss of consciousness [Unknown]
  - Fall [Unknown]
  - Therapeutic response decreased [Unknown]
  - Peripheral coldness [Unknown]

NARRATIVE: CASE EVENT DATE: 20151012
